FAERS Safety Report 4526399-3 (Version None)
Quarter: 2004Q4

REPORT INFORMATION
  Report Type: 
  Country: None (occurrence: None)
  Receive Date: 20041214
  Receipt Date: 20041203
  Transmission Date: 20050328
  Serious: Yes (Disabling)
  Sender: FDA-Public Use
  Company Number: JP-SOLVAY-00304004264

PATIENT
  Age: 57 Year
  Sex: Male

DRUGS (4)
  1. DEPROMEL 25 [Suspect]
     Indication: DEPRESSION
     Dosage: DAILY DOSE: 150 MILLIGRAM(S)
     Route: 048
     Dates: end: 20041028
  2. ZOMIG [Concomitant]
     Indication: ILL-DEFINED DISORDER
     Dosage: DAILY DOSE: 2.5 MILLIGRAM(S) AS NEEDED
     Route: 048
  3. LORAZEPAM [Concomitant]
     Indication: ILL-DEFINED DISORDER
     Dosage: DAILY DOSE: 1.5 MILLIGRAM(S)
     Route: 048
  4. GASMOTIN [Concomitant]
     Indication: ILL-DEFINED DISORDER
     Dosage: DAILY DOSE: 15 MILLIGRAM(S)
     Route: 048

REACTIONS (1)
  - CEREBRAL HAEMORRHAGE [None]
